FAERS Safety Report 4864885-7 (Version None)
Quarter: 2005Q4

REPORT INFORMATION
  Report Type: 
  Country: None (occurrence: None)
  Receive Date: 20051201
  Receipt Date: 20050818
  Transmission Date: 20060501
  Serious: No
  Sender: FDA-Public Use
  Company Number: 2005PV001109

PATIENT
  Age: 58 Year
  Sex: Male
  Weight: 78.4723 kg

DRUGS (10)
  1. BYETTA [Suspect]
     Indication: DIABETES MELLITUS NON-INSULIN-DEPENDENT
     Dosage: 10 MCG; BID; SC; 5 MCG; BID; SC
     Route: 058
     Dates: start: 20050702, end: 20050801
  2. BYETTA [Suspect]
     Indication: DIABETES MELLITUS NON-INSULIN-DEPENDENT
     Dosage: 10 MCG; BID; SC; 5 MCG; BID; SC
     Route: 058
     Dates: start: 20050802, end: 20050808
  3. GLUCOTROL [Concomitant]
  4. GLUCOPHAGE [Concomitant]
  5. LOTENSIN [Concomitant]
  6. ACTOS [Concomitant]
  7. ASPIRIN [Concomitant]
  8. LANTUS [Concomitant]
  9. SUDAFED 12 HOUR [Concomitant]
  10. TYLENOL (CAPLET) [Concomitant]

REACTIONS (4)
  - HYPERSENSITIVITY [None]
  - SWELLING FACE [None]
  - SWOLLEN TONGUE [None]
  - URTICARIA [None]
